FAERS Safety Report 9760284 (Version 1)
Quarter: 2013Q4

REPORT INFORMATION
  Report Type: Spontaneous
  Country: US (occurrence: US)
  Receive Date: 20131216
  Receipt Date: 20131216
  Transmission Date: 20140711
  Serious: No
  Sender: FDA-Public Use
  Company Number: US-GILEAD-2010-0028920

PATIENT
  Age: 53 Year
  Sex: Male

DRUGS (6)
  1. LETAIRIS [Suspect]
     Indication: PULMONARY ARTERIAL HYPERTENSION
     Route: 048
  2. SYMBICORT [Concomitant]
  3. SIMVASTATIN [Concomitant]
  4. VOSPIRE [Concomitant]
  5. ALTACE [Concomitant]
  6. ASA [Concomitant]

REACTIONS (1)
  - Dry mouth [Not Recovered/Not Resolved]
